FAERS Safety Report 14421323 (Version 1)
Quarter: 2018Q1

REPORT INFORMATION
  Report Type: Spontaneous
  Country: ES (occurrence: ES)
  Receive Date: 20180122
  Receipt Date: 20180122
  Transmission Date: 20180509
  Serious: Yes (Other)
  Sender: FDA-Public Use
  Company Number: ES-ALLERGAN-1802410US

PATIENT
  Age: 41 Year
  Sex: Male
  Weight: 82 kg

DRUGS (2)
  1. ESOMEPRAZOL KERN [Suspect]
     Active Substance: ESOMEPRAZOLE MAGNESIUM
     Indication: HELICOBACTER TEST POSITIVE
     Dosage: 40 MG, BID
     Route: 048
     Dates: start: 20171222, end: 20171230
  2. PYLERA [Suspect]
     Active Substance: BISMUTH SUBCITRATE POTASSIUM\METRONIDAZOLE\TETRACYCLINE HYDROCHLORIDE
     Indication: HELICOBACTER TEST POSITIVE
     Route: 048

REACTIONS (11)
  - Decreased appetite [Recovering/Resolving]
  - Oropharyngeal candidiasis [Recovering/Resolving]
  - Dizziness [Recovering/Resolving]
  - Balanitis candida [Recovering/Resolving]
  - Apnoea [Recovering/Resolving]
  - Apathy [Recovering/Resolving]
  - Palpitations [Recovering/Resolving]
  - Respiratory distress [Recovering/Resolving]
  - Loss of libido [Recovering/Resolving]
  - Muscular weakness [Recovering/Resolving]
  - Pain [Recovering/Resolving]

NARRATIVE: CASE EVENT DATE: 20171224
